FAERS Safety Report 17373013 (Version 1)
Quarter: 2020Q1

REPORT INFORMATION
  Report Type: Report from Study
  Country: CA (occurrence: CA)
  Receive Date: 20200205
  Receipt Date: 20200205
  Transmission Date: 20200409
  Serious: Yes (Other)
  Sender: FDA-Public Use
  Company Number: CA-NALPROPION PHARMACEUTICALS INC.-2020-009521

PATIENT

DRUGS (6)
  1. CONTRAVE [Suspect]
     Active Substance: BUPROPION HYDROCHLORIDE\NALTREXONE HYDROCHLORIDE
     Indication: WEIGHT CONTROL
     Dosage: (STRENGTH: 90 MG/8 MG) STARTED APPROXIMATELY ON 06/NOV/2019 TO APPROXIMATELY 12/NOV/2019
     Route: 048
     Dates: start: 201911, end: 201911
  2. CONTRAVE [Suspect]
     Active Substance: BUPROPION HYDROCHLORIDE\NALTREXONE HYDROCHLORIDE
     Dosage: (STRENGTH: 90 MG/8 MG) STARTED ON APPROX 20/NOV/2019 TO APPROX 26/NOV/2019
     Route: 048
     Dates: start: 201911, end: 201911
  3. ADALAT [Concomitant]
     Active Substance: NIFEDIPINE
     Indication: RENAL DISORDER
     Dosage: (1 IN 1 D)
     Route: 048
  4. CONTRAVE [Suspect]
     Active Substance: BUPROPION HYDROCHLORIDE\NALTREXONE HYDROCHLORIDE
     Dosage: (STRENGTH: 90 MG/8 MG) STARTED APPROX. 29/NOV/2019
     Route: 048
     Dates: start: 201911, end: 20191206
  5. CONTRAVE [Suspect]
     Active Substance: BUPROPION HYDROCHLORIDE\NALTREXONE HYDROCHLORIDE
     Dosage: (STRENGTH: 90 MG/8 MG) STARTED ON APPROX 13/NOV/2019 TO APPROX 19/NOV/2019
     Route: 048
     Dates: start: 201911, end: 201911
  6. CONTRAVE [Suspect]
     Active Substance: BUPROPION HYDROCHLORIDE\NALTREXONE HYDROCHLORIDE
     Dosage: (STRENGTH: 90 MG/8 MG) STARTED APPROX. 27/NOV/2019 TO APPROX 28/NOV/2019
     Route: 048
     Dates: start: 201911, end: 201911

REACTIONS (6)
  - Headache [Recovered/Resolved]
  - Insurance issue [Unknown]
  - Blood pressure increased [Recovered/Resolved]
  - Renal impairment [Not Recovered/Not Resolved]
  - Therapy cessation [Unknown]
  - Insomnia [Unknown]

NARRATIVE: CASE EVENT DATE: 2019
